FAERS Safety Report 7441848-9 (Version None)
Quarter: 2011Q2

REPORT INFORMATION
  Report Type: 
  Country: None (occurrence: None)
  Receive Date: 20110420
  Receipt Date: 20110405
  Transmission Date: 20111010
  Serious: Yes (Death, Life-Threatening, Hospitalization)
  Sender: FDA-Public Use
  Company Number: AUR-APL-2011-01229

PATIENT
  Age: 65 Year
  Sex: Male

DRUGS (8)
  1. PEMETREXED DISODIUM [Suspect]
     Dosage: INTRAVENOUS
     Route: 042
     Dates: start: 20101221, end: 20110225
  2. ONDANSETRON [Suspect]
     Dosage: 8MG-ORAL
     Route: 048
  3. CISPLATIN [Suspect]
     Dosage: INTRAVENOUS
     Route: 042
     Dates: start: 20101221, end: 20110225
  4. DALTEPARIN SODIUM [Suspect]
     Indication: LUNG NEOPLASM MALIGNANT
     Dates: start: 20101220, end: 20110225
  5. DEXAMETHASONE [Suspect]
     Dosage: 4MG-ORAL
     Route: 048
     Dates: end: 20110225
  6. ACETAMINOPHEN [Concomitant]
  7. APREPITANT [Suspect]
     Dosage: INTRAVENOUS
     Route: 042
     Dates: start: 20110225, end: 20110225
  8. MS CONTIN [Suspect]
     Dosage: 30MG-ORAL
     Route: 048

REACTIONS (2)
  - PERITONITIS [None]
  - LARGE INTESTINE PERFORATION [None]
